FAERS Safety Report 4768411-2 (Version None)
Quarter: 2005Q3

REPORT INFORMATION
  Report Type: 
  Country: None (occurrence: None)
  Receive Date: 20050906
  Receipt Date: 20050511
  Transmission Date: 20060218
  Serious: No
  Sender: FDA-Public Use
  Company Number: 2005-BP-05827BP

PATIENT
  Age: 84 Year
  Sex: Female
  Weight: 55.5 kg

DRUGS (5)
  1. SPIRIVA [Suspect]
     Indication: DYSPNOEA
     Dosage: 18 MCG (18 MCG), IH
     Route: 055
     Dates: start: 20050404, end: 20050408
  2. SPIRIVA [Suspect]
     Indication: HYPERSENSITIVITY
     Dosage: 18 MCG (18 MCG), IH
     Route: 055
     Dates: start: 20050404, end: 20050408
  3. NORVASC [Concomitant]
  4. LEVOXYL [Concomitant]
  5. THYROID TAB [Concomitant]

REACTIONS (5)
  - BLOOD PRESSURE INCREASED [None]
  - DYSPNOEA [None]
  - HEART RATE INCREASED [None]
  - SWELLING [None]
  - WHEEZING [None]
